FAERS Safety Report 16120290 (Version 1)
Quarter: 2019Q1

REPORT INFORMATION
  Report Type: Spontaneous
  Country: US (occurrence: US)
  Receive Date: 20190326
  Receipt Date: 20190326
  Transmission Date: 20190418
  Serious: Yes (Death, Other)
  Sender: FDA-Public Use
  Company Number: US-009507513-1903USA009225

PATIENT
  Age: 75 Year
  Sex: Male

DRUGS (10)
  1. BUPROPION HYDROCHLORIDE. [Suspect]
     Active Substance: BUPROPION HYDROCHLORIDE
     Indication: BIPOLAR DISORDER
     Dosage: 1 DF, 1D
     Route: 048
     Dates: end: 20020413
  2. PAROXETINE HYDROCHLORIDE. [Suspect]
     Active Substance: PAROXETINE HYDROCHLORIDE
     Indication: BIPOLAR DISORDER
     Dosage: 10 MG QD, 1D
     Route: 048
  3. REMERON [Suspect]
     Active Substance: MIRTAZAPINE
     Indication: BIPOLAR DISORDER
     Dosage: 35 MG QD, 1D
     Route: 048
     Dates: start: 200207, end: 200207
  4. ZOCOR [Concomitant]
     Active Substance: SIMVASTATIN
     Route: 048
  5. DEPAKOTE ER [Suspect]
     Active Substance: DIVALPROEX SODIUM
     Dosage: 1500 MG QD, 1D
     Route: 048
     Dates: start: 2001
  6. SERTRALINE HYDROCHLORIDE. [Suspect]
     Active Substance: SERTRALINE HYDROCHLORIDE
     Indication: BIPOLAR DISORDER
     Dosage: 1 DF, 1D
     Route: 048
     Dates: end: 20020408
  7. DEPAKOTE ER [Suspect]
     Active Substance: DIVALPROEX SODIUM
     Indication: BIPOLAR DISORDER
     Dosage: 1500 MG QD, 1D
     Route: 048
     Dates: start: 20020408, end: 20020410
  8. DEPAKOTE ER [Suspect]
     Active Substance: DIVALPROEX SODIUM
     Dosage: 1000 MG QD, 1D
     Route: 048
     Dates: start: 20020410, end: 20020413
  9. PANADEINE (ACETAMINOPHEN (+) CODEINE PHOSPHATE) [Concomitant]
     Indication: BACK PAIN
     Dosage: UNK
     Route: 048
  10. ASPIRIN. [Concomitant]
     Active Substance: ASPIRIN
     Dosage: UNK

REACTIONS (18)
  - Hypersomnia [Recovered/Resolved]
  - Gait inability [Recovered/Resolved]
  - Communication disorder [Recovered/Resolved]
  - Angle closure glaucoma [Unknown]
  - Feeling abnormal [Unknown]
  - Asthenia [Unknown]
  - Dysphagia [Unknown]
  - Dyspnoea [Unknown]
  - Infected cyst [Unknown]
  - Decreased appetite [Recovered/Resolved]
  - Disturbance in attention [Recovered/Resolved]
  - Brain injury [Unknown]
  - Diabetes mellitus [Recovered/Resolved]
  - Pneumonia aspiration [Fatal]
  - Coma [Recovered/Resolved]
  - Overdose [Unknown]
  - Medication error [Unknown]
  - Parkinson^s disease [Recovered/Resolved]

NARRATIVE: CASE EVENT DATE: 2001
